FAERS Safety Report 16833622 (Version 2)
Quarter: 2019Q3

REPORT INFORMATION
  Report Type: Spontaneous
  Country: CR (occurrence: CR)
  Receive Date: 20190920
  Receipt Date: 20190925
  Transmission Date: 20191005
  Serious: Yes (Other)
  Sender: FDA-Public Use
  Company Number: CR-PFIZER INC-2019404173

PATIENT
  Age: 56 Year
  Sex: Female

DRUGS (9)
  1. DEXTROMETHORPHAN [Interacting]
     Active Substance: DEXTROMETHORPHAN
     Indication: COUGH
  2. PROGYNOVA [ESTRADIOL] [Concomitant]
  3. ALTRULINE [Interacting]
     Active Substance: SERTRALINE HYDROCHLORIDE
     Indication: DECREASED INTEREST
  4. TYLEX FLU [Interacting]
     Active Substance: ACETAMINOPHEN\CHLORPHENIRAMINE MALEATE\DEXTROMETHORPHAN HYDROBROMIDE\PSEUDOEPHEDRINE
     Indication: NASOPHARYNGITIS
  5. ALTRULINE [Suspect]
     Active Substance: SERTRALINE HYDROCHLORIDE
     Indication: ASTHENIA
     Dosage: 50 MG, 1X/DAY
     Dates: start: 201906
  6. ALTRULINE [Interacting]
     Active Substance: SERTRALINE HYDROCHLORIDE
     Indication: PSYCHIATRIC DISORDER PROPHYLAXIS
  7. EUTIROX [Concomitant]
     Active Substance: LEVOTHYROXINE SODIUM
  8. VASSLUTEN H [Concomitant]
  9. ALTRULINE [Interacting]
     Active Substance: SERTRALINE HYDROCHLORIDE
     Indication: EMOTIONAL DISTRESS

REACTIONS (13)
  - Burning sensation [Recovered/Resolved]
  - Dizziness [Recovered/Resolved]
  - Malaise [Recovered/Resolved]
  - Drug interaction [Recovered/Resolved]
  - Pain [Recovered/Resolved]
  - Somnolence [Recovered/Resolved]
  - Asthenia [Recovered/Resolved]
  - Head discomfort [Recovered/Resolved]
  - Serotonin syndrome [Recovered/Resolved]
  - Myalgia [Recovered/Resolved]
  - Stress [Unknown]
  - Nausea [Recovered/Resolved]
  - Vomiting [Recovered/Resolved]

NARRATIVE: CASE EVENT DATE: 20190911
